FAERS Safety Report 8143553-2 (Version None)
Quarter: 2012Q1

REPORT INFORMATION
  Report Type: 
  Country: None (occurrence: None)
  Receive Date: 20120217
  Receipt Date: 20111213
  Transmission Date: 20120608
  Serious: No
  Sender: FDA-Public Use
  Company Number: US-GLAXOSMITHKLINE-A0936751A

PATIENT
  Age: 74 Year
  Sex: Male
  Weight: 88.6 kg

DRUGS (3)
  1. LANTUS [Concomitant]
  2. BLOOD PRESSURE MEDICATION [Concomitant]
  3. VOTRIENT [Suspect]
     Dosage: 800MG PER DAY
     Route: 065
     Dates: start: 20110625

REACTIONS (2)
  - BLOOD PRESSURE INCREASED [None]
  - BLOOD GLUCOSE DECREASED [None]
